FAERS Safety Report 14767827 (Version 1)
Quarter: 2018Q2

REPORT INFORMATION
  Report Type: Spontaneous
  Country: FR (occurrence: FR)
  Receive Date: 20180417
  Receipt Date: 20180417
  Transmission Date: 20180711
  Serious: Yes (Life-Threatening)
  Sender: FDA-Public Use
  Company Number: FR-CIPLA LTD.-2018FR15486

PATIENT

DRUGS (1)
  1. ZOLEDRONIC ACID [Suspect]
     Active Substance: ZOLEDRONIC ACID
     Indication: OSTEOPOROTIC FRACTURE
     Dosage: 5 MG, UNK
     Route: 042
     Dates: start: 20180227, end: 20180227

REACTIONS (7)
  - Hypotension [Recovered/Resolved]
  - Musculoskeletal pain [Unknown]
  - Hyperthermia [Recovered/Resolved]
  - Asthenia [Unknown]
  - Thrombocytopenia [Recovered/Resolved]
  - Pain in extremity [Unknown]
  - Shock [Recovered/Resolved]

NARRATIVE: CASE EVENT DATE: 20180227
